FAERS Safety Report 9163249 (Version 2)
Quarter: 2013Q2

REPORT INFORMATION
  Report Type: Report from Study
  Country: US (occurrence: US)
  Receive Date: 20130314
  Receipt Date: 20130412
  Transmission Date: 20140414
  Serious: Yes (Other)
  Sender: FDA-Public Use
  Company Number: US-ROCHE-1201254

PATIENT
  Age: 53 Year
  Sex: Female

DRUGS (4)
  1. LUCENTIS [Suspect]
     Indication: PRODUCT USED FOR UNKNOWN INDICATION
     Route: 050
     Dates: start: 20110417, end: 20121119
  2. LUCENTIS [Suspect]
     Route: 050
     Dates: start: 20121218, end: 20130115
  3. PROGRAF [Concomitant]
  4. RAPAMUNE [Concomitant]

REACTIONS (2)
  - Eye allergy [Unknown]
  - Iritis [Unknown]
